FAERS Safety Report 16074485 (Version 17)
Quarter: 2020Q1

REPORT INFORMATION
  Report Type: Spontaneous
  Country: US (occurrence: US)
  Receive Date: 20190314
  Receipt Date: 20200318
  Transmission Date: 20200409
  Serious: Yes (Hospitalization)
  Sender: FDA-Public Use
  Company Number: US-ACTELION-A-US2019-187529

PATIENT
  Sex: Female
  Weight: 131.07 kg

DRUGS (5)
  1. UPTRAVI [Suspect]
     Active Substance: SELEXIPAG
     Indication: PULMONARY ARTERIAL HYPERTENSION
     Dosage: 1000 MCG, BID
     Route: 048
  2. UPTRAVI [Suspect]
     Active Substance: SELEXIPAG
     Dosage: 800 MCG, BID
     Route: 048
  3. OPSUMIT [Suspect]
     Active Substance: MACITENTAN
     Indication: PULMONARY ARTERIAL HYPERTENSION
     Dosage: 10 MG, QD
     Route: 048
  4. SILDENAFIL CITRATE. [Concomitant]
     Active Substance: SILDENAFIL CITRATE
  5. WARFARIN [Concomitant]
     Active Substance: WARFARIN

REACTIONS (15)
  - Insomnia [Unknown]
  - Myalgia [Recovering/Resolving]
  - Pain in jaw [Recovering/Resolving]
  - Hospitalisation [Unknown]
  - Asthenia [Unknown]
  - Dyspnoea [Recovering/Resolving]
  - Neuralgia [Unknown]
  - Nausea [Unknown]
  - Fluid retention [Unknown]
  - Fatigue [Unknown]
  - Flushing [Unknown]
  - Chest pain [Unknown]
  - Pain in extremity [Unknown]
  - Dizziness [Unknown]
  - Palpitations [Unknown]
